FAERS Safety Report 9357968 (Version 2)
Quarter: 2013Q2

REPORT INFORMATION
  Report Type: Spontaneous
  Country: FR (occurrence: FR)
  Receive Date: 20130620
  Receipt Date: 20130626
  Transmission Date: 20140414
  Serious: Yes (Other)
  Sender: FDA-Public Use
  Company Number: FR-PFIZER INC-2013180212

PATIENT
  Age: 62 Year
  Sex: Female

DRUGS (14)
  1. TAHOR [Suspect]
     Dosage: UNK
     Route: 048
  2. OGAST [Interacting]
     Dosage: UNK
     Route: 048
  3. SERETIDE [Interacting]
     Dosage: UNK
     Route: 055
     Dates: start: 2008, end: 20130423
  4. ONGLYZA [Interacting]
     Dosage: 5 MG, UNK
     Route: 048
     Dates: start: 201301, end: 20130423
  5. ISOPTINE [Interacting]
     Dosage: UNK
     Route: 048
  6. PLAVIX [Interacting]
     Dosage: 75 MG, UNK
     Route: 048
  7. SPIRIVA [Interacting]
     Dosage: UNK
     Route: 055
  8. SINGULAIR [Interacting]
     Dosage: UNK
     Route: 048
  9. INNOVAIR [Concomitant]
     Dosage: UNK
     Route: 055
     Dates: start: 20130423
  10. COAPROVEL [Concomitant]
     Dosage: UNK
     Route: 048
  11. LASILIX [Concomitant]
     Dosage: UNK
     Route: 048
  12. CORVASAL [Concomitant]
     Dosage: UNK
     Route: 048
  13. METFORMIN HYDROCHLORIDE [Concomitant]
     Dosage: UNK
     Route: 048
  14. VENTOLINE [Concomitant]
     Dosage: UNK
     Route: 055

REACTIONS (6)
  - Drug interaction [Recovered/Resolved]
  - Hypogammaglobulinaemia [Recovered/Resolved]
  - Cushing^s syndrome [Unknown]
  - Lung infection [Unknown]
  - Pneumonia [Unknown]
  - Infection [Unknown]
